FAERS Safety Report 12915347 (Version 1)
Quarter: 2016Q4

REPORT INFORMATION
  Report Type: Spontaneous
  Country: US (occurrence: US)
  Receive Date: 20161106
  Receipt Date: 20161106
  Transmission Date: 20170207
  Serious: No
  Sender: FDA-Public Use
  Company Number: US-RELYPSA-RLY2016002762

PATIENT
  Age: 72 Year
  Sex: Male

DRUGS (9)
  1. SODIUM BICARBONATE. [Concomitant]
     Active Substance: SODIUM BICARBONATE
  2. CALCITRIOL. [Concomitant]
     Active Substance: CALCITRIOL
  3. MOVANTIK [Concomitant]
     Active Substance: NALOXEGOL OXALATE
  4. ASPIRIN                            /00002701/ [Concomitant]
     Active Substance: ASPIRIN
  5. TAMSULOSIN [Concomitant]
     Active Substance: TAMSULOSIN
  6. ISOSORBIDE DINITRATE. [Concomitant]
     Active Substance: ISOSORBIDE DINITRATE
  7. LANTUS [Concomitant]
     Active Substance: INSULIN GLARGINE
  8. VELTASSA [Suspect]
     Active Substance: PATIROMER
     Indication: HYPERKALAEMIA
     Dosage: 8.4 G, QD
     Route: 048
     Dates: start: 20160119
  9. LIPITOR [Concomitant]
     Active Substance: ATORVASTATIN CALCIUM

REACTIONS (1)
  - Pruritus [Unknown]

NARRATIVE: CASE EVENT DATE: 201609
